FAERS Safety Report 22213628 (Version 1)
Quarter: 2023Q2

REPORT INFORMATION
  Report Type: Spontaneous
  Country: FR (occurrence: FR)
  Receive Date: 20230414
  Receipt Date: 20230414
  Transmission Date: 20230722
  Serious: Yes (Hospitalization, Other)
  Sender: FDA-Public Use
  Company Number: FR-Accord-306459

PATIENT
  Age: 18 Year
  Sex: Female

DRUGS (9)
  1. MITOXANTRONE [Suspect]
     Active Substance: MITOXANTRONE HYDROCHLORIDE
     Indication: Product used for unknown indication
     Dosage: 12.5 MILLIGRAM/SQ. METER, CYCLIC
     Route: 065
     Dates: start: 20220617, end: 20220620
  2. MITOXANTRONE [Suspect]
     Active Substance: MITOXANTRONE HYDROCHLORIDE
     Dosage: 12.5 MILLIGRAM/SQ. METER, DAILY
     Route: 065
     Dates: start: 20220805, end: 20220807
  3. CYTARABINE [Suspect]
     Active Substance: CYTARABINE
     Indication: Product used for unknown indication
     Dosage: 200 MILLIGRAM/SQ. METER, DAILY
     Route: 065
     Dates: start: 20220617, end: 20220626
  4. CYTARABINE [Suspect]
     Active Substance: CYTARABINE
     Dosage: 200 MILLIGRAM/SQ. METER, DAILY
     Route: 065
     Dates: start: 20220805, end: 20220812
  5. CYTARABINE [Suspect]
     Active Substance: CYTARABINE
     Dosage: 6000 MILLIGRAM/SQ. METER, DAILY
     Route: 065
     Dates: start: 20221007, end: 20221011
  6. CYTARABINE [Suspect]
     Active Substance: CYTARABINE
     Dosage: 6000 MILLIGRAM/SQ. METER, DAILY
     Route: 065
     Dates: start: 20221122, end: 20221126
  7. GEMTUZUMAB OZOGAMICIN [Suspect]
     Active Substance: GEMTUZUMAB OZOGAMICIN
     Indication: Product used for unknown indication
     Dosage: 4.95 MILLIGRAM, SINGLE
     Route: 065
     Dates: start: 20220621, end: 20220621
  8. GEMTUZUMAB OZOGAMICIN [Suspect]
     Active Substance: GEMTUZUMAB OZOGAMICIN
     Dosage: 4.95 MILLIGRAM, SINGLE
     Route: 065
     Dates: start: 20220624, end: 20220624
  9. GEMTUZUMAB OZOGAMICIN [Suspect]
     Active Substance: GEMTUZUMAB OZOGAMICIN
     Dosage: 4.95 MILLIGRAM, SINGLE
     Route: 065
     Dates: start: 20220627, end: 20220627

REACTIONS (1)
  - Guillain-Barre syndrome [Not Recovered/Not Resolved]

NARRATIVE: CASE EVENT DATE: 20230207
